FAERS Safety Report 8957144 (Version 1)
Quarter: 2012Q4

REPORT INFORMATION
  Report Type: Spontaneous
  Country: US (occurrence: None)
  Receive Date: 20121130
  Receipt Date: 20121130
  Transmission Date: 20130627
  Serious: Yes (Other)
  Sender: FDA-Public Use
  Company Number: AUR-APL-2012-05053

PATIENT
  Sex: Female

DRUGS (1)
  1. CLINDAMYCIN [Suspect]
     Indication: DENTAL TREATMENT
     Route: 048
     Dates: start: 20120820, end: 20120823

REACTIONS (3)
  - Abdominal pain upper [None]
  - Rectal haemorrhage [None]
  - Nausea [None]
